FAERS Safety Report 14211054 (Version 5)
Quarter: 2018Q1

REPORT INFORMATION
  Report Type: Spontaneous
  Country: US (occurrence: US)
  Receive Date: 20171121
  Receipt Date: 20180205
  Transmission Date: 20180508
  Serious: Yes (Other)
  Sender: FDA-Public Use
  Company Number: US-PFIZER INC-2017361374

PATIENT
  Age: 72 Year
  Sex: Male

DRUGS (8)
  1. MOVE FREE JOINT STRENGTHENER [Concomitant]
     Dosage: UNK
  2. SUTENT [Suspect]
     Active Substance: SUNITINIB MALATE
     Dosage: 37.5 MG, UNK
  3. VITAMIN D [Concomitant]
     Active Substance: CHOLECALCIFEROL
     Dosage: UNK
  4. FISH OIL [Concomitant]
     Active Substance: FISH OIL
     Dosage: UNK
  5. SUTENT [Suspect]
     Active Substance: SUNITINIB MALATE
     Indication: METASTATIC RENAL CELL CARCINOMA
     Dosage: 25 MG, CYCLIC (DAILY FOR 28 DAYS ON/ 14 DAYS OFF
     Dates: start: 20171002, end: 20180101
  6. VITAMINS C [Concomitant]
     Dosage: UNK
  7. SUTENT [Suspect]
     Active Substance: SUNITINIB MALATE
     Dosage: 25 MG, CYCLIC (28 DAYS ON/14 DAYS OFF)
     Dates: start: 20180108
  8. TYLENOL [Concomitant]
     Active Substance: ACETAMINOPHEN
     Dosage: UNK

REACTIONS (10)
  - Stomatitis [Recovered/Resolved]
  - Dysphonia [Unknown]
  - Nasopharyngitis [Unknown]
  - Colitis ulcerative [Not Recovered/Not Resolved]
  - Rhinorrhoea [Unknown]
  - Dyspnoea [Unknown]
  - Haemorrhage [Unknown]
  - Decubitus ulcer [Unknown]
  - Product use issue [Unknown]
  - Erythema [Unknown]
